FAERS Safety Report 5748223-3 (Version None)
Quarter: 2008Q2

REPORT INFORMATION
  Report Type: 
  Country: None (occurrence: None)
  Receive Date: 20080523
  Receipt Date: 20080513
  Transmission Date: 20081010
  Serious: Yes (Hospitalization, Other)
  Sender: FDA-Public Use
  Company Number: CA-PFIZER INC-2006124331

PATIENT
  Sex: Male
  Weight: 66 kg

DRUGS (3)
  1. SU-011,248 [Suspect]
     Indication: RENAL CELL CARCINOMA
     Route: 048
  2. EPREX [Suspect]
     Route: 058
     Dates: start: 20060809, end: 20060930
  3. MEGACE [Concomitant]
     Route: 048
     Dates: start: 20060809, end: 20060930

REACTIONS (1)
  - POSTICTAL STATE [None]
